FAERS Safety Report 25633378 (Version 6)
Quarter: 2025Q4

REPORT INFORMATION
  Report Type: Spontaneous
  Country: US (occurrence: US)
  Receive Date: 20250801
  Receipt Date: 20251202
  Transmission Date: 20260118
  Serious: No
  Sender: PFIZER
  Company Number: US-PFIZER INC-PV202500092700

PATIENT
  Age: 61 Year
  Sex: Female

DRUGS (4)
  1. IBRANCE [Suspect]
     Active Substance: PALBOCICLIB
     Indication: Breast cancer female
     Dosage: 100 MG
  2. IBRANCE [Suspect]
     Active Substance: PALBOCICLIB
     Dosage: UNK
     Dates: start: 20250830
  3. ITOVEBI [Suspect]
     Active Substance: INAVOLISIB
     Dosage: UNK
  4. ITOVEBI [Suspect]
     Active Substance: INAVOLISIB
     Dosage: 3 MG

REACTIONS (10)
  - Anxiety [Unknown]
  - Hypertension [Unknown]
  - Palpitations [Unknown]
  - Dysgeusia [Unknown]
  - Stomatitis [Recovered/Resolved]
  - Aphthous ulcer [Unknown]
  - Fatigue [Unknown]
  - White blood cell count decreased [Recovered/Resolved]
  - Platelet count decreased [Recovered/Resolved]
  - Decreased appetite [Unknown]
